FAERS Safety Report 22178918 (Version 2)
Quarter: 2023Q2

REPORT INFORMATION
  Report Type: Spontaneous
  Country: US (occurrence: US)
  Receive Date: 20230406
  Receipt Date: 20230508
  Transmission Date: 20230722
  Serious: No
  Sender: FDA-Public Use
  Company Number: US-TEVA-2023-US-2871234

PATIENT
  Sex: Female

DRUGS (1)
  1. ADDERALL [Suspect]
     Active Substance: AMPHETAMINE ASPARTATE\AMPHETAMINE SULFATE\DEXTROAMPHETAMINE SACCHARATE\DEXTROAMPHETAMINE SULFATE
     Indication: Product used for unknown indication
     Dates: start: 2009

REACTIONS (13)
  - Loss of personal independence in daily activities [Unknown]
  - Disturbance in attention [Unknown]
  - Memory impairment [Unknown]
  - Oral discomfort [Unknown]
  - Panic reaction [Unknown]
  - Depression [Unknown]
  - Intrusive thoughts [Unknown]
  - Mental disorder [Unknown]
  - Executive dysfunction [Unknown]
  - Logorrhoea [Unknown]
  - Drug ineffective [Unknown]
  - Binge eating [Unknown]
  - Drug intolerance [Unknown]

NARRATIVE: CASE EVENT DATE: 20230301
